FAERS Safety Report 17852183 (Version 1)
Quarter: 2020Q2

REPORT INFORMATION
  Report Type: Spontaneous
  Country: US (occurrence: US)
  Receive Date: 20200602
  Receipt Date: 20200602
  Transmission Date: 20200714
  Serious: Yes (Hospitalization)
  Sender: FDA-Public Use
  Company Number: US-TEVA-2020-US-1242142

PATIENT
  Age: 62 Year
  Sex: Male

DRUGS (3)
  1. OMEPRAZOLE. [Concomitant]
     Active Substance: OMEPRAZOLE
     Dosage: 40 MILLIGRAM DAILY; 30 MINUTES PRIOR TO BREAKFAST, SCHEDULED FOR 3 MONTHS
     Route: 048
  2. ZANTAC [Concomitant]
     Active Substance: RANITIDINE HYDROCHLORIDE
     Dosage: 300 MILLIGRAM DAILY; BEFORE BEDTIME, SCHEDULED FOR 3 MONTHS
     Route: 048
  3. TRIAMCINOLONE [Suspect]
     Active Substance: TRIAMCINOLONE
     Indication: STEROID THERAPY
     Dosage: 40 MG/ML CONCENTRATION; SUSPENSION INJECTION
     Route: 026

REACTIONS (1)
  - Vocal cord leukoplakia [Unknown]
